FAERS Safety Report 16534136 (Version 2)
Quarter: 2019Q3

REPORT INFORMATION
  Report Type: Spontaneous
  Country: FR (occurrence: FR)
  Receive Date: 20190705
  Receipt Date: 20190906
  Transmission Date: 20191004
  Serious: Yes (Other)
  Sender: FDA-Public Use
  Company Number: PHHY2019FR151577

PATIENT
  Age: 62 Year
  Sex: Female

DRUGS (3)
  1. CABERGOLINE. [Suspect]
     Active Substance: CABERGOLINE
     Indication: CUSHING^S SYNDROME
     Dosage: 0.5 MG, QD
     Route: 065
     Dates: start: 20170713, end: 20180109
  2. KETOCONAZOLE. [Suspect]
     Active Substance: KETOCONAZOLE
     Indication: CUSHING^S SYNDROME
     Dosage: 800 MG, QD (400 MG TWICE DAILY)
     Route: 065
     Dates: start: 20170713, end: 20170719
  3. KETOCONAZOLE. [Suspect]
     Active Substance: KETOCONAZOLE
     Dosage: 400 MG, QD (200 MG TWICE DAILY)
     Route: 065
     Dates: start: 20170720, end: 20170723

REACTIONS (3)
  - Adrenal insufficiency [Recovered/Resolved]
  - Product use in unapproved indication [Unknown]
  - Off label use [Unknown]

NARRATIVE: CASE EVENT DATE: 201707
